FAERS Safety Report 24661904 (Version 4)
Quarter: 2025Q1

REPORT INFORMATION
  Report Type: Spontaneous
  Country: GT (occurrence: GT)
  Receive Date: 20241125
  Receipt Date: 20250122
  Transmission Date: 20250408
  Serious: No
  Sender: PFIZER
  Company Number: GT-PFIZER INC-PV202400111738

PATIENT
  Age: 3 Year
  Sex: Male

DRUGS (1)
  1. GENOTROPIN [Suspect]
     Active Substance: SOMATROPIN
     Dosage: 0.6 MG, DAILY
     Dates: start: 202408

REACTIONS (5)
  - Device defective [Unknown]
  - Device leakage [Unknown]
  - Product communication issue [Unknown]
  - Wrong technique in device usage process [Unknown]
  - Product dose omission issue [Unknown]
